FAERS Safety Report 5323577-0 (Version None)
Quarter: 2007Q2

REPORT INFORMATION
  Report Type: 
  Country: None (occurrence: None)
  Receive Date: 20070514
  Receipt Date: 20070501
  Transmission Date: 20071010
  Serious: Yes (Hospitalization)
  Sender: FDA-Public Use
  Company Number: US-AMGEN-US175035

PATIENT
  Sex: Male

DRUGS (23)
  1. PANITUMUMAB [Suspect]
     Indication: COLORECTAL CANCER
     Route: 042
     Dates: start: 20051024, end: 20060322
  2. PANITUMUMAB [Suspect]
     Route: 042
     Dates: start: 20060322, end: 20061218
  3. AVASTIN [Concomitant]
     Route: 042
  4. FLUOROURACIL [Concomitant]
     Route: 042
  5. LEUCOVORIN CALCIUM [Concomitant]
     Route: 042
  6. PERCOCET [Concomitant]
     Route: 065
  7. NORVASC [Concomitant]
     Route: 065
  8. MORPHINE [Concomitant]
     Route: 065
  9. IBUPROFEN [Concomitant]
     Route: 065
  10. VALIUM [Concomitant]
     Route: 065
  11. COMPAZINE [Concomitant]
     Route: 065
  12. K-DUR 10 [Concomitant]
     Route: 065
  13. DILAUDID [Concomitant]
     Route: 042
  14. MEGACE [Concomitant]
     Route: 065
  15. QUESTRAN [Concomitant]
     Route: 065
  16. MAGNESIUM OXIDE [Concomitant]
     Route: 065
  17. DESITIN [Concomitant]
     Route: 061
  18. LIDOCAINE [Concomitant]
     Route: 061
  19. ZINC OXIDE [Concomitant]
     Route: 061
  20. CELEBREX [Concomitant]
     Route: 065
  21. AVINZA [Concomitant]
     Route: 065
  22. OXALIPLATIN [Concomitant]
     Route: 042
  23. PROTONIX [Concomitant]
     Route: 065

REACTIONS (6)
  - ACUTE RESPIRATORY DISTRESS SYNDROME [None]
  - METABOLIC ENCEPHALOPATHY [None]
  - PNEUMONIA BACTERIAL [None]
  - PULMONARY EMBOLISM [None]
  - RENAL FAILURE ACUTE [None]
  - SEPTIC SHOCK [None]
